FAERS Safety Report 6801749-3 (Version None)
Quarter: 2010Q2

REPORT INFORMATION
  Report Type: 
  Country: None (occurrence: None)
  Receive Date: 20100624
  Receipt Date: 20100610
  Transmission Date: 20101027
  Serious: Yes (Hospitalization)
  Sender: FDA-Public Use
  Company Number: MPS1-1000342

PATIENT
  Age: 4 Year
  Sex: Female

DRUGS (3)
  1. ALDURAZYME [Suspect]
     Indication: MUCOPOLYSACCHARIDOSIS
     Dates: start: 20080526, end: 20100110
  2. SALBUTAMOL (SALBUTAMOL SULFATE) [Concomitant]
  3. CLENIL (BECLOMETASONE DIPROPIONATE) [Concomitant]

REACTIONS (2)
  - BRONCHOSPASM [None]
  - RESPIRATORY FAILURE [None]
